FAERS Safety Report 7278629-5 (Version None)
Quarter: 2011Q1

REPORT INFORMATION
  Report Type: 
  Country: None (occurrence: None)
  Receive Date: 20110207
  Receipt Date: 20110203
  Transmission Date: 20110831
  Serious: No
  Sender: FDA-Public Use
  Company Number: US-PFIZER INC-2011025445

PATIENT
  Sex: Female
  Weight: 81.633 kg

DRUGS (5)
  1. ALAVERT [Suspect]
     Indication: THROAT IRRITATION
  2. ALAVERT [Suspect]
     Indication: LACRIMATION INCREASED
  3. ALAVERT [Suspect]
     Indication: HYPERSENSITIVITY
     Dosage: 10 MG, UNK
     Route: 048
     Dates: start: 20110125, end: 20110130
  4. ALAVERT [Suspect]
     Indication: EYE PRURITUS
  5. ALAVERT [Suspect]
     Indication: RHINORRHOEA

REACTIONS (1)
  - DRUG INEFFECTIVE [None]
